FAERS Safety Report 23875343 (Version 2)
Quarter: 2024Q2

REPORT INFORMATION
  Report Type: Spontaneous
  Country: FR (occurrence: FR)
  Receive Date: 20240520
  Receipt Date: 20240604
  Transmission Date: 20240716
  Serious: Yes (Other)
  Sender: FDA-Public Use
  Company Number: FR-BRISTOL-MYERS SQUIBB COMPANY-2024-077168

PATIENT
  Sex: Female

DRUGS (3)
  1. ELIQUIS [Suspect]
     Active Substance: APIXABAN
     Indication: Thrombosis prophylaxis
     Dosage: DOSE : 5 MG;     FREQ : 1 TABLET IN THE MORNING AND 1 TABLET IN THE EVENING
     Route: 048
     Dates: start: 20231016
  2. ELIQUIS [Suspect]
     Active Substance: APIXABAN
     Indication: Phlebitis
  3. ALPRAZOLAM [Concomitant]
     Active Substance: ALPRAZOLAM
     Indication: Anxiolytic therapy

REACTIONS (3)
  - Alopecia [Not Recovered/Not Resolved]
  - Iliac vein occlusion [Unknown]
  - Vaginal haemorrhage [Unknown]

NARRATIVE: CASE EVENT DATE: 20231001
